FAERS Safety Report 5080564-8 (Version None)
Quarter: 2006Q3

REPORT INFORMATION
  Report Type: 
  Country: None (occurrence: None)
  Receive Date: 20060815
  Receipt Date: 20060807
  Transmission Date: 20061208
  Serious: Yes (Other)
  Sender: FDA-Public Use
  Company Number: PHBS2006JP11865

PATIENT
  Age: 83 Year
  Sex: Female

DRUGS (5)
  1. DIOVAN [Suspect]
     Dosage: 80 MG/DAY
     Route: 048
     Dates: start: 20050101, end: 20060101
  2. NORVASC [Suspect]
     Dosage: 5 MG/DAY
     Route: 048
     Dates: start: 20030101, end: 20060101
  3. LASIX [Concomitant]
     Dosage: 20 MG, UNK
     Route: 048
     Dates: start: 20050101
  4. PERSANTIN-L [Concomitant]
     Dosage: 300 MG, UNK
     Route: 048
  5. ISOSORBIDE MONONITRATE [Concomitant]
     Dosage: 40 MG, UNK
     Route: 048

REACTIONS (1)
  - ERYTHEMA MULTIFORME [None]
